FAERS Safety Report 7981280-2 (Version None)
Quarter: 2011Q4

REPORT INFORMATION
  Report Type: 
  Country: None (occurrence: None)
  Receive Date: 20111215
  Receipt Date: 20111205
  Transmission Date: 20120403
  Serious: Yes (Other)
  Sender: FDA-Public Use
  Company Number: US-BAYER-201032768NA

PATIENT
  Age: 28 Year
  Sex: Female
  Weight: 61.22 kg

DRUGS (24)
  1. PSEUDOEPHEDRINE HYDROCHLORIDE [Concomitant]
  2. MEDROL [Concomitant]
     Dosage: AS DIRECTED
     Route: 048
     Dates: start: 20081110
  3. PHENERGAN [Concomitant]
     Dosage: 25 MG, PRN
     Route: 048
  4. AMITIZA [Concomitant]
     Dosage: 24MCG TWICE DAILY WITH MEALS
     Route: 048
     Dates: start: 20081110
  5. METRONIDAZOLE [Concomitant]
     Dosage: 500 MG, UNK
     Dates: start: 20080707
  6. NASACORT [Concomitant]
     Indication: NASAL CONGESTION
     Dosage: 2 SPRAYS TWICE DAILY
     Route: 045
     Dates: start: 20081110
  7. YAZ [Suspect]
     Indication: CONTRACEPTION
     Dosage: UNK UNK, UNK
     Route: 048
     Dates: start: 20070901, end: 20091001
  8. LEVAQUIN [Concomitant]
     Dosage: 250 MG, DAILY
     Route: 048
     Dates: start: 20081110
  9. LAMISIL [Concomitant]
     Dosage: 250 MG, DAILY
     Dates: start: 20081110
  10. BENTYL [Concomitant]
     Dosage: 10 MG, QD
     Route: 048
     Dates: start: 20081110, end: 20081110
  11. DARVOCET [Concomitant]
     Dosage: EVERY 4-6 HOURS
     Route: 048
     Dates: start: 20081110
  12. PROTONIX [Concomitant]
     Dosage: DAILY DOSE 40 MG
     Route: 048
     Dates: start: 20081110
  13. SPECTRACEF [Concomitant]
     Dosage: 400 MG, BID
     Route: 048
     Dates: start: 20081110, end: 20081119
  14. DRYSOL [Concomitant]
     Dosage: AS DIRECTED
     Dates: start: 20081110
  15. TESSALON [Concomitant]
     Indication: COUGH
     Dosage: 200 MG, PRN, EVERY 8 HOURS
     Route: 048
     Dates: start: 20081110
  16. KEFLEX [Concomitant]
     Dosage: 500 MG, BID
     Route: 048
     Dates: start: 20081110
  17. ASTELIN [Concomitant]
     Indication: NASAL CONGESTION
     Dosage: 2 SPRAYS TWICE DAILY
     Route: 045
     Dates: start: 20081110
  18. DIFLUCAN [Concomitant]
     Dosage: 150 MG, DAILY FOR 2 DOSES
     Route: 048
     Dates: start: 20081110
  19. LEVAQUIN [Concomitant]
     Dosage: UNK
     Dates: start: 20081214
  20. ACYCLOVIR [Concomitant]
     Indication: HERPES VIRUS INFECTION
     Dosage: UNK
     Dates: start: 20080701
  21. ASTEPRO [Concomitant]
     Indication: NASAL CONGESTION
     Dosage: 2 SPRAYS
     Route: 045
     Dates: start: 20081110
  22. TUSSICAPS [Concomitant]
     Indication: COUGH
     Dosage: 10/8MG TWICE DAILY  AS NEEDED
     Route: 048
     Dates: start: 20081110
  23. FLAGYL [Concomitant]
     Dosage: 500 MG, BID
     Dates: start: 20081110
  24. LOESTRIN FE 1/20 [Concomitant]

REACTIONS (4)
  - ABDOMINAL PAIN UPPER [None]
  - GALLBLADDER DISORDER [None]
  - CHOLECYSTITIS CHRONIC [None]
  - CHOLELITHIASIS [None]
